FAERS Safety Report 6415750-5 (Version None)
Quarter: 2009Q4

REPORT INFORMATION
  Report Type: 
  Country: None (occurrence: None)
  Receive Date: 20091027
  Receipt Date: 20091022
  Transmission Date: 20100525
  Serious: Yes (Death)
  Sender: FDA-Public Use
  Company Number: US-CUBIST-2009S1000468

PATIENT
  Weight: 51 kg

DRUGS (4)
  1. CUBICIN [Suspect]
     Indication: STAPHYLOCOCCAL BACTERAEMIA
     Dates: start: 20091015
  2. CUBICIN [Suspect]
     Indication: ENDOCARDITIS STAPHYLOCOCCAL
     Dates: start: 20091015
  3. CUBICIN [Suspect]
     Dates: start: 20091015
  4. CUBICIN [Suspect]
     Dates: start: 20091015

REACTIONS (2)
  - HYPERKALAEMIA [None]
  - MYOCARDIAL INFARCTION [None]
